FAERS Safety Report 8091194-8 (Version None)
Quarter: 2012Q1

REPORT INFORMATION
  Report Type: 
  Country: None (occurrence: None)
  Receive Date: 20120129
  Receipt Date: 20110930
  Transmission Date: 20120608
  Serious: No
  Sender: FDA-Public Use
  Company Number: US-ABBOTT-11P-163-0859656-00

PATIENT
  Sex: Female
  Weight: 59.928 kg

DRUGS (4)
  1. HUMIRA [Suspect]
     Indication: COLITIS ULCERATIVE
     Dosage: (160 MG, LOADING DOSE)
     Route: 058
     Dates: start: 20110620, end: 20110620
  2. HUMIRA [Suspect]
     Dosage: (80 MG, SECOND LOADING DOSE)
     Route: 058
     Dates: start: 20110705, end: 20110705
  3. CELEBREX [Concomitant]
     Indication: OSTEOARTHRITIS
  4. HUMIRA [Suspect]
     Route: 058
     Dates: start: 20110718

REACTIONS (2)
  - HYPOAESTHESIA [None]
  - ARTHRALGIA [None]
